FAERS Safety Report 14562983 (Version 3)
Quarter: 2018Q1

REPORT INFORMATION
  Report Type: Spontaneous
  Country: US (occurrence: US)
  Receive Date: 20180222
  Receipt Date: 20180316
  Transmission Date: 20180509
  Serious: Yes (Other)
  Sender: FDA-Public Use
  Company Number: US-ASTRAZENECA-2008BM06426

PATIENT
  Age: 787 Month
  Sex: Female
  Weight: 58.1 kg

DRUGS (13)
  1. SIMVASTATIN. [Concomitant]
     Active Substance: SIMVASTATIN
     Dosage: UNK
  2. BYETTA [Suspect]
     Active Substance: EXENATIDE
     Indication: TYPE 2 DIABETES MELLITUS
     Route: 058
     Dates: start: 200709, end: 20080701
  3. BYETTA [Suspect]
     Active Substance: EXENATIDE
     Indication: TYPE 2 DIABETES MELLITUS
     Route: 058
     Dates: end: 201802
  4. AVASTIN [Concomitant]
     Active Substance: BEVACIZUMAB
     Indication: EYE DISORDER
     Dosage: UNK
     Dates: start: 2005
  5. ISOSORBIDE MONONITRATE. [Concomitant]
     Active Substance: ISOSORBIDE MONONITRATE
  6. LIPITOR [Concomitant]
     Active Substance: ATORVASTATIN CALCIUM
     Indication: BLOOD CHOLESTEROL ABNORMAL
  7. ASPIRIN. [Concomitant]
     Active Substance: ASPIRIN
     Indication: CEREBROVASCULAR ACCIDENT
     Dosage: BAYER
  8. ZESTRIL [Concomitant]
     Active Substance: LISINOPRIL
     Indication: PROPHYLAXIS
  9. BYETTA [Suspect]
     Active Substance: EXENATIDE
     Indication: TYPE 2 DIABETES MELLITUS
     Route: 058
     Dates: start: 20080430, end: 20080701
  10. GLUCOPHAGE [Concomitant]
     Active Substance: METFORMIN HYDROCHLORIDE
     Indication: TYPE 2 DIABETES MELLITUS
  11. FLUORESCEIN [Concomitant]
     Active Substance: FLUORESCEIN
     Indication: EYE DISORDER
     Dosage: UNK
     Route: 042
     Dates: start: 2008, end: 2008
  12. BYDUREON [Suspect]
     Active Substance: EXENATIDE
     Dosage: 2.0MG UNKNOWN
     Route: 065
  13. GLIPIZIDE. [Concomitant]
     Active Substance: GLIPIZIDE
     Dosage: UNK
     Route: 048
     Dates: end: 200804

REACTIONS (16)
  - Eye haemorrhage [Recovering/Resolving]
  - Glycosylated haemoglobin increased [Not Recovered/Not Resolved]
  - Decreased appetite [Not Recovered/Not Resolved]
  - Product substitution issue [Unknown]
  - Device leakage [Unknown]
  - Visual acuity reduced [Recovering/Resolving]
  - Microalbuminuria [Unknown]
  - Blood glucose decreased [Unknown]
  - Chromaturia [Unknown]
  - Nausea [Recovered/Resolved]
  - Intentional product misuse [Recovered/Resolved]
  - Device use error [Unknown]
  - Cataract [Recovering/Resolving]
  - Blood glucose increased [Recovered/Resolved]
  - Creatinine urine increased [Unknown]
  - Vomiting [Unknown]

NARRATIVE: CASE EVENT DATE: 200709
